FAERS Safety Report 8911227 (Version 1)
Quarter: 2012Q4

REPORT INFORMATION
  Report Type: 
  Country: US (occurrence: US)
  Receive Date: 20121116
  Receipt Date: 20121116
  Transmission Date: 20130627
  Serious: No
  Sender: FDA-Public Use
  Company Number: US-GLAXOSMITHKLINE-A0992618A

PATIENT
  Age: 61 Year
  Sex: Male
  Weight: 85 kg

DRUGS (5)
  1. VOTRIENT [Suspect]
     Indication: PRODUCT USED FOR UNKNOWN INDICATION
     Dosage: 800MG Per day
     Route: 048
  2. LISINOPRIL [Concomitant]
     Dosage: 5MG cumulative dose
  3. SIMVASTATIN [Concomitant]
     Dosage: 20MG cumulative dose
  4. ASPIRIN EC [Concomitant]
  5. AMIODARONE [Concomitant]

REACTIONS (3)
  - Ageusia [Unknown]
  - Fatigue [Unknown]
  - Diarrhoea [Unknown]
